FAERS Safety Report 8981152 (Version 2)
Quarter: 2013Q1

REPORT INFORMATION
  Report Type: Spontaneous
  Country: US (occurrence: US)
  Receive Date: 20121221
  Receipt Date: 20130128
  Transmission Date: 20140127
  Serious: Yes (Death, Hospitalization)
  Sender: FDA-Public Use
  Company Number: US-GLAXOSMITHKLINE-A1006049A

PATIENT
  Age: 80 Year
  Sex: Male

DRUGS (4)
  1. ARIXTRA [Suspect]
     Indication: THROMBOSIS
     Route: 058
     Dates: start: 20120719, end: 20121011
  2. OXYCONTIN [Concomitant]
  3. CHEMOTHERAPY [Concomitant]
  4. UNSPECIFIED MEDICATION [Concomitant]
     Indication: CONSTIPATION

REACTIONS (1)
  - Pancreatic carcinoma stage IV [Fatal]
